FAERS Safety Report 4913046-1 (Version None)
Quarter: 2006Q1

REPORT INFORMATION
  Report Type: 
  Country: None (occurrence: None)
  Receive Date: 20060210
  Receipt Date: 20060127
  Transmission Date: 20060701
  Serious: Yes (Death, Hospitalization)
  Sender: FDA-Public Use
  Company Number: L05-USA-03935-41

PATIENT
  Age: 58 Year
  Sex: Female

DRUGS (4)
  1. ESCITALOPRAM OXALATE [Suspect]
  2. VALPROIC ACID [Suspect]
  3. LORAZEPAM [Suspect]
  4. METFORMIN [Suspect]

REACTIONS (10)
  - BRAIN DEATH [None]
  - BRAIN OEDEMA [None]
  - CONVULSION [None]
  - ENCEPHALOPATHY [None]
  - HAEMODIALYSIS [None]
  - HYPERAMMONAEMIA [None]
  - OVERDOSE [None]
  - POSTURING [None]
  - SELF-MEDICATION [None]
  - SUICIDE ATTEMPT [None]
